FAERS Safety Report 7055384-5 (Version None)
Quarter: 2010Q4

REPORT INFORMATION
  Report Type: 
  Country: None (occurrence: None)
  Receive Date: 20101021
  Receipt Date: 20101014
  Transmission Date: 20110411
  Serious: Yes (Life-Threatening, Hospitalization)
  Sender: FDA-Public Use
  Company Number: US-SANOFI-AVENTIS-2010SA052680

PATIENT
  Sex: Male

DRUGS (7)
  1. MULTAQ [Suspect]
     Indication: ATRIAL FIBRILLATION
     Route: 048
     Dates: start: 20100317, end: 20100823
  2. ALCOHOL [Suspect]
     Dosage: CONSUMED A SIGNIFICANT AMOUNT (UNSPECIFIED)
     Route: 048
  3. LIPITOR [Concomitant]
  4. IRON [Concomitant]
  5. LASIX [Concomitant]
  6. POTASSIUM [Concomitant]
  7. COUMADIN [Concomitant]

REACTIONS (5)
  - BLOOD POTASSIUM DECREASED [None]
  - CARDIAC ARREST [None]
  - ELECTROCARDIOGRAM QT PROLONGED [None]
  - VENTRICULAR FIBRILLATION [None]
  - VENTRICULAR TACHYCARDIA [None]
